FAERS Safety Report 16576583 (Version 1)
Quarter: 2019Q3

REPORT INFORMATION
  Report Type: Spontaneous
  Country: CA (occurrence: CA)
  Receive Date: 20190716
  Receipt Date: 20190716
  Transmission Date: 20191004
  Serious: Yes (Other)
  Sender: FDA-Public Use
  Company Number: CA-AUROBINDO-AUR-APL-2019-039159

PATIENT

DRUGS (2)
  1. MOXIFLOXACIN. [Suspect]
     Active Substance: MOXIFLOXACIN
     Indication: SINUSITIS
     Dosage: 400 MILLIGRAM
     Route: 065
  2. MEPOLIZUMAB [Suspect]
     Active Substance: MEPOLIZUMAB
     Indication: ASTHMA
     Dosage: 1000 MILLIGRAM
     Route: 042

REACTIONS (7)
  - Nasopharyngitis [Unknown]
  - Sinusitis [Unknown]
  - Cough [Unknown]
  - Anaphylactic reaction [Unknown]
  - Oropharyngeal pain [Unknown]
  - Malaise [Unknown]
  - Sinus congestion [Unknown]
